FAERS Safety Report 25814066 (Version 1)
Quarter: 2025Q3

REPORT INFORMATION
  Report Type: Spontaneous
  Country: US (occurrence: None)
  Receive Date: 20250917
  Receipt Date: 20250917
  Transmission Date: 20251020
  Serious: Yes (unspecified)
  Sender: FDA-CTU
  Company Number: None

PATIENT
  Age: 70 Year
  Sex: Female
  Weight: 72 kg

DRUGS (1)
  1. BACTRIM [Suspect]
     Active Substance: SULFAMETHOXAZOLE\TRIMETHOPRIM
     Indication: Sinusitis bacterial
     Dosage: OTHER QUANTITY : 1 TABLET(S);?FREQUENCY : TWICE A DAY;?
     Route: 048
     Dates: start: 20250615, end: 20250616

REACTIONS (7)
  - Syncope [None]
  - Somnolence [None]
  - Vomiting [None]
  - Diarrhoea [None]
  - Muscle twitching [None]
  - Hypotension [None]
  - Blood glucose decreased [None]

NARRATIVE: CASE EVENT DATE: 20250615
